FAERS Safety Report 9531174 (Version 1)
Quarter: 2013Q3

REPORT INFORMATION
  Report Type: Spontaneous
  Country: US (occurrence: US)
  Receive Date: 20130918
  Receipt Date: 20130918
  Transmission Date: 20140515
  Serious: No
  Sender: FDA-Public Use
  Company Number: US-B.I. PHARMACEUTICALS,INC./RIDGEFIELD-2013-BI-28168BP

PATIENT
  Sex: 0

DRUGS (1)
  1. MELOXICAM [Suspect]
     Dosage: DOSE PER APPLICATION: 0.5 MG/ML
     Route: 048

REACTIONS (2)
  - Accidental exposure to product [Unknown]
  - Myoclonus [Unknown]
